FAERS Safety Report 6666620-9 (Version None)
Quarter: 2010Q2

REPORT INFORMATION
  Report Type: 
  Country: None (occurrence: None)
  Receive Date: 20100405
  Receipt Date: 20100326
  Transmission Date: 20101027
  Serious: Yes (Hospitalization)
  Sender: FDA-Public Use
  Company Number: US-BIOGENIDEC-2010BI006789

PATIENT
  Age: 51 Year
  Sex: Female

DRUGS (23)
  1. TYSABRI [Suspect]
     Indication: MULTIPLE SCLEROSIS
     Route: 042
     Dates: start: 20060920, end: 20091201
  2. ATIVAN [Concomitant]
     Indication: TREMOR
  3. ATIVAN [Concomitant]
     Indication: CONVULSION
  4. TOPAMAX [Concomitant]
     Indication: CENTRAL NERVOUS SYSTEM LESION
  5. TOPAMAX [Concomitant]
     Indication: GAIT DISTURBANCE
  6. TOPAMAX [Concomitant]
     Indication: BALANCE DISORDER
  7. TOPAMAX [Concomitant]
     Indication: ASTHENIA
  8. REMERON [Concomitant]
  9. ASPIRIN [Concomitant]
  10. PREMARIN [Concomitant]
  11. ELMIRON [Concomitant]
  12. TRAZODONE HCL [Concomitant]
  13. PERCOCET [Concomitant]
  14. MULTI-VITAMIN [Concomitant]
  15. COLACE [Concomitant]
  16. METHADONE HCL [Concomitant]
  17. RELPAX [Concomitant]
  18. ZELNORM [Concomitant]
  19. NITROGLYCERIN [Concomitant]
  20. ZOFRAN [Concomitant]
  21. GLUCOPHAGE XR [Concomitant]
  22. LOTENSIN [Concomitant]
  23. SONATA [Concomitant]

REACTIONS (13)
  - ASTHENIA [None]
  - BALANCE DISORDER [None]
  - CENTRAL NERVOUS SYSTEM LESION [None]
  - CONVULSION [None]
  - CORONARY ARTERY DISEASE [None]
  - DEPRESSION [None]
  - FATIGUE [None]
  - GAIT DISTURBANCE [None]
  - HEADACHE [None]
  - HYPOTENSION [None]
  - MEMORY IMPAIRMENT [None]
  - SLEEP DISORDER [None]
  - TREMOR [None]
